FAERS Safety Report 15958407 (Version 4)
Quarter: 2019Q4

REPORT INFORMATION
  Report Type: Report from Study
  Country: RU (occurrence: RU)
  Receive Date: 20190213
  Receipt Date: 20191016
  Transmission Date: 20200122
  Serious: Yes (Death, Hospitalization, Other)
  Sender: FDA-Public Use
  Company Number: RU-EXELIXIS-XL18418015954

PATIENT
  Age: 36 Year
  Sex: Female
  Weight: 72 kg

DRUGS (4)
  1. BLINDED XL184 [Suspect]
     Active Substance: CABOZANTINIB
     Dosage: 140 OR 60 MG QD
     Route: 048
     Dates: start: 20180524
  2. BLINDED XL184 [Suspect]
     Active Substance: CABOZANTINIB
     Dosage: 100 OR 40 MG QD
     Route: 048
     Dates: end: 20180906
  3. BLINDED XL184 [Suspect]
     Active Substance: CABOZANTINIB
     Dosage: 100 OR 40 MG QD
     Route: 048
     Dates: end: 20180906
  4. BLINDED XL184 [Suspect]
     Active Substance: CABOZANTINIB
     Dosage: 140 OR 60 MG QD
     Route: 048
     Dates: start: 20180524

REACTIONS (2)
  - Tracheo-oesophageal fistula [Not Recovered/Not Resolved]
  - Medullary thyroid cancer [Fatal]

NARRATIVE: CASE EVENT DATE: 20180907
